FAERS Safety Report 23100933 (Version 1)
Quarter: 2023Q4

REPORT INFORMATION
  Report Type: Spontaneous
  Country: US (occurrence: None)
  Receive Date: 20231021
  Receipt Date: 20231021
  Transmission Date: 20240110
  Serious: Yes (Hospitalization)
  Sender: FDA-Public Use
  Company Number: None

PATIENT
  Age: 53 Year
  Sex: Female
  Weight: 99.7 kg

DRUGS (1)
  1. DULAGLUTIDE [Suspect]
     Active Substance: DULAGLUTIDE
     Dosage: FREQUENCY : WEEKLY;?
     Route: 058
     Dates: start: 20220307, end: 20230106

REACTIONS (5)
  - Pancreatitis acute [None]
  - Hepatomegaly [None]
  - Cholelithiasis [None]
  - Cholelithiasis [None]
  - Depressed mood [None]

NARRATIVE: CASE EVENT DATE: 20230106
